FAERS Safety Report 10307443 (Version 2)
Quarter: 2014Q3

REPORT INFORMATION
  Report Type: Spontaneous
  Country: US (occurrence: US)
  Receive Date: 20140716
  Receipt Date: 20140821
  Transmission Date: 20150326
  Serious: No
  Sender: FDA-Public Use
  Company Number: US-AMGEN-USASP2014052915

PATIENT
  Age: 30 Year
  Sex: Female
  Weight: 55.96 kg

DRUGS (18)
  1. LEVOTHYROXINE SODIUM. [Concomitant]
     Active Substance: LEVOTHYROXINE SODIUM
     Dosage: 875 MCG, QD (1 TABLET DAILY)
     Route: 048
  2. PRO FLORA [Concomitant]
     Dosage: UNK, USE AS DIRECTED
  3. TESTOSTERONE CYPIONATE. [Concomitant]
     Active Substance: TESTOSTERONE CYPIONATE
     Dosage: 200 MG, QWK
     Route: 030
  4. MIRAPEX [Concomitant]
     Active Substance: PRAMIPEXOLE DIHYDROCHLORIDE
     Dosage: 75 MG, QD (1 TABLET DAILY)
     Route: 048
     Dates: start: 20140807
  5. ACYCLOVIR                          /00587301/ [Concomitant]
     Active Substance: ACYCLOVIR
     Dosage: 200 MG, AS NEEDED
     Route: 048
  6. NUVIGIL [Concomitant]
     Active Substance: ARMODAFINIL
     Dosage: 250 MG, (1 TABLET DAILY AS NEEDED)
     Route: 048
     Dates: start: 20140521
  7. ENBREL [Suspect]
     Active Substance: ETANERCEPT
     Indication: RHEUMATOID ARTHRITIS
     Dosage: 50 MG, QWK
     Route: 058
     Dates: start: 20140707
  8. CYANOCOBALAMIN. [Concomitant]
     Active Substance: CYANOCOBALAMIN
     Dosage: 1000 MUG/ML WEEKLY (1 ML INTRAMASCULARLY)
     Route: 030
  9. HYDROXYCHLOROQUINE SULFATE. [Concomitant]
     Active Substance: HYDROXYCHLOROQUINE SULFATE
     Dosage: 200 MG, (1 TABLET TWICE DAILY)
     Route: 048
     Dates: start: 20131220
  10. LYRICA [Concomitant]
     Active Substance: PREGABALIN
     Dosage: 75 MG, BID (1 CAPSULE TWICE DAILY)
     Route: 048
  11. PROGESTERONE. [Concomitant]
     Active Substance: PROGESTERONE
     Dosage: 1 CAPSULE DAILY
  12. BD [Concomitant]
     Dosage: UNK, AS DISRECTED
     Dates: start: 20140707
  13. CYMBALTA [Concomitant]
     Active Substance: DULOXETINE HYDROCHLORIDE
     Dosage: 30 MG, QD (1 CAPSULE DAILY)
     Route: 048
     Dates: start: 20140521
  14. ETODOLAC. [Concomitant]
     Active Substance: ETODOLAC
     Dosage: 500 MG, BID (1 TABLET TWICE DAILY WITH MEALS)
     Route: 048
     Dates: start: 20140807
  15. HYDROCODONE ACETAMINOPHEN [Concomitant]
     Active Substance: ACETAMINOPHEN\HYDROCODONE BITARTRATE
     Dosage: 10-325 MG, 1 TABLET TWICE DAILY PRN FOR PAIN
     Route: 048
  16. MIRAPEX [Concomitant]
     Active Substance: PRAMIPEXOLE DIHYDROCHLORIDE
     Dosage: 1 MG, BID (1 TABLET TWICE DAILY)
     Route: 048
  17. SPIRONOLACTONE. [Concomitant]
     Active Substance: SPIRONOLACTONE
     Dosage: 100 MG, QD (1 TABLET DAILY)
     Route: 048
  18. VOLTAREN [Concomitant]
     Active Substance: DICLOFENAC SODIUM
     Dosage: UNK, APPLY TO PAINFUL JOINTS THREE TIMES DAILY AS NEEDED

REACTIONS (4)
  - Pain in extremity [Not Recovered/Not Resolved]
  - Hypoaesthesia [Not Recovered/Not Resolved]
  - Blood test abnormal [Not Recovered/Not Resolved]
  - Injection site pain [Recovered/Resolved]

NARRATIVE: CASE EVENT DATE: 20140707
